FAERS Safety Report 11866139 (Version 1)
Quarter: 2015Q4

REPORT INFORMATION
  Report Type: Report from Study
  Country: US (occurrence: US)
  Receive Date: 20151223
  Receipt Date: 20151223
  Transmission Date: 20160305
  Serious: No
  Sender: FDA-Public Use
  Company Number: US-EXELIXIS-CABO-15005679

PATIENT
  Sex: Female

DRUGS (10)
  1. ESTRIOL [Concomitant]
     Active Substance: ESTRIOL
  2. VALIUM [Concomitant]
     Active Substance: DIAZEPAM
  3. PREDNISONE. [Concomitant]
     Active Substance: PREDNISONE
  4. PROTONIX [Concomitant]
     Active Substance: PANTOPRAZOLE SODIUM
  5. FENTANYL. [Concomitant]
     Active Substance: FENTANYL
  6. VITAMIN B12 [Concomitant]
     Active Substance: CYANOCOBALAMIN
  7. COMETRIQ [Suspect]
     Active Substance: CABOZANTINIB S-MALATE
     Indication: RENAL CANCER
     Dosage: 40 MG, QD
     Route: 048
     Dates: start: 20150903, end: 20151103
  8. NEURONTIN [Concomitant]
     Active Substance: GABAPENTIN
  9. HYDROMORPHONE [Concomitant]
     Active Substance: HYDROMORPHONE
  10. VITAMIN D3 [Concomitant]
     Active Substance: CHOLECALCIFEROL

REACTIONS (4)
  - Contusion [Recovered/Resolved]
  - Tenderness [Recovered/Resolved]
  - Off label use [Unknown]
  - Headache [Recovered/Resolved]
